FAERS Safety Report 7301827-9 (Version None)
Quarter: 2011Q1

REPORT INFORMATION
  Report Type: 
  Country: None (occurrence: None)
  Receive Date: 20110218
  Receipt Date: 20110211
  Transmission Date: 20110831
  Serious: Yes (Death, Hospitalization)
  Sender: FDA-Public Use
  Company Number: B0700579A

PATIENT
  Age: 59 Year
  Sex: Male

DRUGS (2)
  1. AVANDAMET [Suspect]
     Indication: DIABETES MELLITUS
     Route: 048
     Dates: start: 20040729, end: 20041229
  2. AVANDIA [Suspect]
     Indication: DIABETES MELLITUS
     Route: 048
     Dates: start: 20011001, end: 20040729

REACTIONS (3)
  - PICKWICKIAN SYNDROME [None]
  - MYOCARDIAL INFARCTION [None]
  - RESPIRATORY FAILURE [None]
